FAERS Safety Report 7776011-5 (Version None)
Quarter: 2011Q3

REPORT INFORMATION
  Report Type: 
  Country: None (occurrence: None)
  Receive Date: 20110923
  Receipt Date: 20110914
  Transmission Date: 20111222
  Serious: Yes (Other)
  Sender: FDA-Public Use
  Company Number: US-ASTRAZENECA-2011SE55247

PATIENT
  Age: 64 Year
  Sex: Male
  Weight: 154.2 kg

DRUGS (3)
  1. SEROQUEL [Suspect]
     Indication: DEPRESSION
     Route: 048
  2. OTHER HYPERTENSIVE DRUG [Concomitant]
  3. SEROQUEL [Suspect]
     Indication: SLEEP DISORDER
     Route: 048

REACTIONS (6)
  - LOSS OF CONSCIOUSNESS [None]
  - FATIGUE [None]
  - OFF LABEL USE [None]
  - DIZZINESS [None]
  - ASTHENIA [None]
  - DYSPNOEA [None]
